FAERS Safety Report 12630666 (Version 2)
Quarter: 2016Q3

REPORT INFORMATION
  Report Type: Report from Study
  Country: BR (occurrence: BR)
  Receive Date: 20160808
  Receipt Date: 20160825
  Transmission Date: 20161109
  Serious: No
  Sender: FDA-Public Use
  Company Number: PHHY2016BR106110

PATIENT
  Sex: Female
  Weight: 73 kg

DRUGS (5)
  1. AZORGA [Suspect]
     Active Substance: BRINZOLAMIDE\TIMOLOL MALEATE
     Indication: GLAUCOMA
     Dosage: 6.8 MG, BID, (02 DROPS IN THE MORNING AND 02 DROPS AT NIGHT)
     Route: 047
  2. AZORGA [Suspect]
     Active Substance: BRINZOLAMIDE\TIMOLOL MALEATE
     Indication: INTRAOCULAR PRESSURE INCREASED
  3. INFLUENZA VIRUS VACCINE - UNKNOWN INN [Suspect]
     Active Substance: INFLUENZA VIRUS VACCINE
     Indication: IMMUNISATION
     Route: 065
  4. TIMOLOL. [Concomitant]
     Active Substance: TIMOLOL
     Indication: GLAUCOMA
     Dosage: 1 GTT, BID (1 DROP IN EACH EYE IN THE MORNING AND AT NIGHT, AND ALSO DURING DAY IF PRESSURE BOTHER)
     Route: 065
     Dates: start: 1970
  5. TIMOLOL. [Concomitant]
     Active Substance: TIMOLOL
     Indication: INTRAOCULAR PRESSURE INCREASED

REACTIONS (7)
  - Vision blurred [Recovering/Resolving]
  - Memory impairment [Recovering/Resolving]
  - Hypoacusis [Recovering/Resolving]
  - Visual acuity reduced [Recovering/Resolving]
  - Intraocular pressure increased [Recovering/Resolving]
  - Influenza [Recovered/Resolved]
  - Pyrexia [Recovered/Resolved]
